FAERS Safety Report 6910075-3 (Version None)
Quarter: 2010Q3

REPORT INFORMATION
  Report Type: 
  Country: None (occurrence: None)
  Receive Date: 20100806
  Receipt Date: 20100727
  Transmission Date: 20110219
  Serious: No
  Sender: FDA-Public Use
  Company Number: US-JNJFOC-20100708710

PATIENT
  Sex: Male
  Weight: 122.47 kg

DRUGS (4)
  1. FENTANYL CITRATE [Suspect]
     Indication: ARTHRITIS
     Dosage: NDC 0781-7241-55
     Route: 062
  2. LANTUS [Concomitant]
     Indication: DIABETES MELLITUS
     Dosage: 60 UNITS/SOLUTION/30 UNITS/DAILY/INJECTION
     Route: 058
  3. INSULIN [Concomitant]
     Indication: DIABETES MELLITUS
     Dosage: 45 UNITS/DAILY/INJECTION
     Route: 058
  4. PAREGORIC [Concomitant]
     Indication: COLITIS
     Dosage: 2 TEASPOONS
     Route: 065

REACTIONS (1)
  - WRONG TECHNIQUE IN DRUG USAGE PROCESS [None]
